FAERS Safety Report 12537599 (Version 3)
Quarter: 2016Q3

REPORT INFORMATION
  Report Type: Report from Study
  Country: FR (occurrence: FR)
  Receive Date: 20160707
  Receipt Date: 20160809
  Transmission Date: 20161109
  Serious: Yes (Other)
  Sender: FDA-Public Use
  Company Number: FR-GILEAD-2016-0222094

PATIENT
  Age: 70 Year
  Sex: Female
  Weight: 32 kg

DRUGS (7)
  1. TENOFOVIR DISOPROXIL FUMARATE. [Suspect]
     Active Substance: TENOFOVIR DISOPROXIL FUMARATE
     Indication: HIV INFECTION
     Dosage: 0.5 MG, Q3WK
     Route: 048
  2. CELLCEPT [Concomitant]
     Active Substance: MYCOPHENOLATE MOFETIL\MYCOPHENOLATE MOFETIL HYDROCHLORIDE
     Dosage: UNK, BID
  3. NEORAL [Concomitant]
     Active Substance: CYCLOSPORINE
  4. SIMULECT [Concomitant]
     Active Substance: BASILIXIMAB
  5. TACROLIMUS. [Concomitant]
     Active Substance: TACROLIMUS
     Dosage: 10 MG, UNK
  6. CALCIDOSE                          /00944201/ [Concomitant]
     Active Substance: CALCIUM CARBONATE\CHOLECALCIFEROL
  7. SOLUPRED                           /00016201/ [Concomitant]
     Active Substance: PREDNISOLONE
     Dosage: 20 MG, UNK

REACTIONS (3)
  - Fanconi syndrome acquired [Unknown]
  - Renal failure [Not Recovered/Not Resolved]
  - Osteoporotic fracture [Unknown]

NARRATIVE: CASE EVENT DATE: 2000
